FAERS Safety Report 5822541-2 (Version None)
Quarter: 2008Q3

REPORT INFORMATION
  Report Type: 
  Country: None (occurrence: None)
  Receive Date: 20080725
  Receipt Date: 20080125
  Transmission Date: 20090109
  Serious: No
  Sender: FDA-Public Use
  Company Number: US-AMGEN-KDL262611

PATIENT
  Sex: Male
  Weight: 55.4 kg

DRUGS (6)
  1. PROCRIT [Suspect]
     Indication: ANAEMIA OF MALIGNANT DISEASE
     Dates: start: 20080103
  2. NEUPOGEN [Suspect]
     Dates: start: 20071206
  3. GEMZAR [Concomitant]
     Dates: start: 20071114
  4. CISPLATIN [Concomitant]
     Dates: start: 20071114
  5. AVASTIN [Concomitant]
     Dates: start: 20071114
  6. UNSPECIFIED ANTIHYPERTENSIVE AGENT [Concomitant]

REACTIONS (4)
  - BONE PAIN [None]
  - LOCAL SWELLING [None]
  - PYREXIA [None]
  - SKIN SWELLING [None]
